FAERS Safety Report 5949896-2 (Version None)
Quarter: 2008Q4

REPORT INFORMATION
  Report Type: 
  Country: None (occurrence: None)
  Receive Date: 20081112
  Receipt Date: 20081029
  Transmission Date: 20090506
  Serious: Yes (Other)
  Sender: FDA-Public Use
  Company Number: FR-ELI_LILLY_AND_COMPANY-FR200811000340

PATIENT
  Sex: Female

DRUGS (3)
  1. CYMBALTA [Suspect]
     Indication: DEPRESSION
     Dosage: 60 MG, DAILY (1/D)
     Route: 048
  2. ALEPSAL [Concomitant]
     Indication: EPILEPSY
     Dosage: 50 MG, 2/D
     Route: 048
  3. DEPAKENE [Concomitant]
     Indication: EPILEPSY
     Dosage: 200 MG, 2/D
     Route: 048

REACTIONS (1)
  - EPILEPSY [None]
